FAERS Safety Report 9104898 (Version 1)
Quarter: 2013Q1

REPORT INFORMATION
  Report Type: Spontaneous
  Country: FR (occurrence: FR)
  Receive Date: 20130219
  Receipt Date: 20130219
  Transmission Date: 20140127
  Serious: Yes (Hospitalization)
  Sender: FDA-Public Use
  Company Number: PHHY2013FR014677

PATIENT
  Age: 62 Year
  Sex: Male

DRUGS (3)
  1. GLIVEC [Suspect]
     Indication: CHRONIC MYELOID LEUKAEMIA
     Dosage: 500 MG, QD
     Route: 048
     Dates: start: 200309, end: 200712
  2. SPRYCEL [Suspect]
     Indication: CHRONIC MYELOID LEUKAEMIA
     Dosage: UNK UKN, UNK
     Dates: start: 200712, end: 201210
  3. SPRYCEL [Suspect]
     Dosage: 70 MG, QD
     Route: 048
     Dates: start: 201210, end: 20121226

REACTIONS (1)
  - Acute coronary syndrome [Recovered/Resolved]
